FAERS Safety Report 12457690 (Version 2)
Quarter: 2016Q2

REPORT INFORMATION
  Report Type: Report from Study
  Country: BR (occurrence: BR)
  Receive Date: 20160611
  Receipt Date: 20160614
  Transmission Date: 20160815
  Serious: Yes (Death, Hospitalization, Other)
  Sender: FDA-Public Use
  Company Number: PHHY2016BR067491

PATIENT
  Age: 75 Year
  Sex: Male
  Weight: 68 kg

DRUGS (3)
  1. VIDAZA [Suspect]
     Active Substance: AZACITIDINE
     Indication: MYELODYSPLASTIC SYNDROME
     Dosage: 1 DF, QMO
     Route: 058
  2. EXJADE [Suspect]
     Active Substance: DEFERASIROX
     Dosage: 1250 MG (2 DF OF 500 MG + 1 DF OF 250 MG), UNK
     Route: 048
     Dates: start: 201604, end: 201605
  3. EXJADE [Suspect]
     Active Substance: DEFERASIROX
     Indication: MYELODYSPLASTIC SYNDROME
     Dosage: 750 MG (500 MG + 250 MG) (10 MG/KG), QD
     Route: 048
     Dates: start: 2014

REACTIONS (8)
  - Diarrhoea haemorrhagic [Not Recovered/Not Resolved]
  - Dehydration [Not Recovered/Not Resolved]
  - Spinal pain [Unknown]
  - Multiple organ dysfunction syndrome [Fatal]
  - Asthenia [Not Recovered/Not Resolved]
  - Respiratory arrest [Fatal]
  - Red blood cell count increased [Unknown]
  - Concomitant disease aggravated [Unknown]

NARRATIVE: CASE EVENT DATE: 2014
